FAERS Safety Report 20808717 (Version 2)
Quarter: 2022Q2

REPORT INFORMATION
  Report Type: Spontaneous
  Country: US (occurrence: US)
  Receive Date: 20220510
  Receipt Date: 20220517
  Transmission Date: 20220721
  Serious: Yes (Hospitalization)
  Sender: FDA-Public Use
  Company Number: US-NOVOPROD-916230

PATIENT
  Age: 60 Year
  Sex: Female

DRUGS (1)
  1. SAXENDA [Suspect]
     Active Substance: LIRAGLUTIDE
     Indication: Obesity
     Dosage: 3.2 MG, QD
     Dates: start: 20170101, end: 20210827

REACTIONS (9)
  - Bile duct stone [Recovered/Resolved]
  - Duodenal perforation [Recovered/Resolved]
  - Perforation bile duct [Recovered/Resolved]
  - Pelvic abscess [Recovered/Resolved]
  - Sepsis [Recovered/Resolved]
  - Hepatitis [Recovered/Resolved]
  - Cholecystitis [Recovered/Resolved]
  - Pancreatitis [Recovered/Resolved]
  - Product use issue [Recovered/Resolved]

NARRATIVE: CASE EVENT DATE: 20170101
